FAERS Safety Report 7306292-3 (Version None)
Quarter: 2011Q1

REPORT INFORMATION
  Report Type: 
  Country: None (occurrence: None)
  Receive Date: 20110222
  Receipt Date: 20110211
  Transmission Date: 20110831
  Serious: Yes (Hospitalization)
  Sender: FDA-Public Use
  Company Number: PHHY2011US11853

PATIENT
  Sex: Male

DRUGS (1)
  1. EXJADE [Suspect]
     Indication: LYMPHOPROLIFERATIVE DISORDER
     Dosage: 2000 MG DAILY
     Route: 048
     Dates: start: 20100916

REACTIONS (3)
  - EPISTAXIS [None]
  - HEADACHE [None]
  - DYSPNOEA [None]
